FAERS Safety Report 6274268-3 (Version None)
Quarter: 2009Q3

REPORT INFORMATION
  Report Type: 
  Country: None (occurrence: None)
  Receive Date: 20090716
  Receipt Date: 20090702
  Transmission Date: 20100115
  Serious: Yes (Death)
  Sender: FDA-Public Use
  Company Number: 2009001999

PATIENT
  Age: 76 Year
  Sex: Female

DRUGS (6)
  1. ERLOTINIB (ERLOTINIB) (TABLET) (ERLOTINIB) [Suspect]
     Indication: PANCREATIC CARCINOMA METASTATIC
     Dosage: 100 MG, QD, ORAL
     Route: 048
     Dates: start: 20081218, end: 20090331
  2. GEMCITABINE [Suspect]
     Dosage: 100 MG, EVERY 7 DAYS, INTRAD CORPUS CAVERNOSUM
     Dates: start: 20081218, end: 20090327
  3. OMEPRAZOLE [Concomitant]
  4. AMOXICILLIN [Concomitant]
  5. LORAZEPAM (LORAZEIPAM) [Concomitant]
  6. METAMIZOL [Concomitant]

REACTIONS (3)
  - BONE MARROW FAILURE [None]
  - MALIGNANT NEOPLASM PROGRESSION [None]
  - RECTAL HAEMORRHAGE [None]
